FAERS Safety Report 23916062 (Version 3)
Quarter: 2024Q3

REPORT INFORMATION
  Report Type: Spontaneous
  Country: US (occurrence: US)
  Receive Date: 20240529
  Receipt Date: 20240913
  Transmission Date: 20241017
  Serious: No
  Sender: SANOFI AVENTIS
  Company Number: US-SA-SAC20240527000620

PATIENT
  Age: 16 Year
  Sex: Female

DRUGS (4)
  1. DUPIXENT [Suspect]
     Active Substance: DUPILUMAB
     Indication: Asthma
     Dosage: 300 MG, QOW
     Route: 058
     Dates: start: 20240210
  2. DESVENLAFAXINE [Concomitant]
     Active Substance: DESVENLAFAXINE
     Dosage: UNK
  3. PALIPERIDONE [Concomitant]
     Active Substance: PALIPERIDONE
     Dosage: UNK
  4. TOPIRAMATE [Concomitant]
     Active Substance: TOPIRAMATE
     Dosage: UNK

REACTIONS (6)
  - Respiratory tract congestion [Recovered/Resolved]
  - Injection site urticaria [Recovered/Resolved]
  - Injection site discharge [Recovered/Resolved]
  - Eye pruritus [Recovered/Resolved]
  - Injection site erythema [Recovered/Resolved]
  - Allergy to animal [Unknown]

NARRATIVE: CASE EVENT DATE: 20240101
